FAERS Safety Report 20086121 (Version 1)
Quarter: 2021Q4

REPORT INFORMATION
  Report Type: Report from Study
  Country: GB (occurrence: GB)
  Receive Date: 20211118
  Receipt Date: 20211118
  Transmission Date: 20220303
  Serious: Yes (Death, Hospitalization)
  Sender: FDA-Public Use
  Company Number: GB-PFIZER INC-202101585110

PATIENT
  Sex: Female
  Weight: 63 kg

DRUGS (2)
  1. XELJANZ [Suspect]
     Active Substance: TOFACITINIB CITRATE
     Indication: Rheumatoid arthritis
     Dosage: UNK
     Route: 048
     Dates: start: 20141115, end: 20190731
  2. METHOTREXATE [Concomitant]
     Active Substance: METHOTREXATE
     Dosage: UNK
     Dates: start: 20160721, end: 20190731

REACTIONS (7)
  - Death [Fatal]
  - Sepsis [Fatal]
  - Candida pneumonia [Fatal]
  - Hypoalbuminaemia [Unknown]
  - Pleural effusion [Unknown]
  - Hyponatraemia [Unknown]
  - Immunosuppression [Unknown]

NARRATIVE: CASE EVENT DATE: 20190927
